FAERS Safety Report 8710818 (Version 3)
Quarter: 2012Q4

REPORT INFORMATION
  Report Type: 
  Country: SK (occurrence: SK)
  Receive Date: 20120807
  Receipt Date: 20120824
  Transmission Date: 20130627
  Serious: Yes (Death, Hospitalization, Other)
  Sender: FDA-Public Use
  Company Number: SK-ELI_LILLY_AND_COMPANY-SK201208000356

PATIENT
  Age: 65 Year
  Sex: Male

DRUGS (2)
  1. FORSTEO [Suspect]
     Indication: OSTEOPOROSIS
     Dosage: UNK, unknown
     Route: 058
     Dates: start: 20111121, end: 20120711
  2. PREDNISON [Concomitant]
     Indication: PULMONARY FIBROSIS
     Dosage: 20 mg, UNK
     Dates: start: 201002

REACTIONS (6)
  - Cardiopulmonary failure [Fatal]
  - Bronchopneumonia [Fatal]
  - Hospitalisation [Unknown]
  - Myocardial ischaemia [Unknown]
  - Hypertensive heart disease [Unknown]
  - Asthma [Unknown]
